FAERS Safety Report 7701355-2 (Version None)
Quarter: 2011Q3

REPORT INFORMATION
  Report Type: 
  Country: None (occurrence: None)
  Receive Date: 20110822
  Receipt Date: 20110805
  Transmission Date: 20111222
  Serious: Yes (Hospitalization, Other)
  Sender: FDA-Public Use
  Company Number: PHEH1991US01131

PATIENT
  Age: 18 Year
  Sex: Female

DRUGS (2)
  1. SYNTOCINON [Suspect]
     Indication: DELIVERY
     Route: 042
  2. METHYLERGONOVINE MALEATE [Suspect]
     Indication: DELIVERY
     Route: 042

REACTIONS (12)
  - MUSCLE RIGIDITY [None]
  - CSF PRESSURE INCREASED [None]
  - BLOOD PRESSURE INCREASED [None]
  - HAEMATURIA [None]
  - HEADACHE [None]
  - OLIGURIA [None]
  - TREMOR [None]
  - NAUSEA [None]
  - VOMITING [None]
  - ALBUMINURIA [None]
  - GRAND MAL CONVULSION [None]
  - BRAIN OEDEMA [None]
